FAERS Safety Report 4710544-0 (Version None)
Quarter: 2005Q3

REPORT INFORMATION
  Report Type: 
  Country: None (occurrence: None)
  Receive Date: 20050707
  Receipt Date: 20050627
  Transmission Date: 20060218
  Serious: Yes (Hospitalization, Other)
  Sender: FDA-Public Use
  Company Number: 2005037931

PATIENT
  Sex: Male
  Weight: 70 kg

DRUGS (5)
  1. NORVASC [Suspect]
     Indication: HYPERTENSION
     Dosage: 10 MG (10 MG, DAILY) ORAL
     Route: 048
     Dates: start: 19950101
  2. ASPIRIN [Concomitant]
  3. LIPITOR [Concomitant]
  4. AVAPRO HCT (HYDROCHLOROTHIAZIDE, IRBESARTAN) [Concomitant]
  5. ASTRIX (ACETYLSALICYLIC ACID) [Concomitant]

REACTIONS (13)
  - ATRIAL FIBRILLATION [None]
  - CARDIOVASCULAR DISORDER [None]
  - CEREBROVASCULAR ACCIDENT [None]
  - COUGH [None]
  - DEHYDRATION [None]
  - HYPOTENSION [None]
  - NOCTURIA [None]
  - OEDEMA PERIPHERAL [None]
  - PARAESTHESIA [None]
  - PERIPHERAL ISCHAEMIA [None]
  - PROSTATECTOMY [None]
  - TACHYCARDIA [None]
  - THIRST [None]
